FAERS Safety Report 11289229 (Version 1)
Quarter: 2015Q3

REPORT INFORMATION
  Report Type: Spontaneous
  Country: CH (occurrence: CH)
  Receive Date: 20150721
  Receipt Date: 20150721
  Transmission Date: 20151125
  Serious: Yes (Other)
  Sender: FDA-Public Use
  Company Number: CH-PFIZER INC-2015237063

PATIENT
  Age: 48 Year
  Sex: Female

DRUGS (11)
  1. DILZEM [Concomitant]
     Active Substance: DILTIAZEM
     Dosage: 90 MG, 2X/DAY
  2. CETIRIZINE [Concomitant]
     Active Substance: CETIRIZINE HYDROCHLORIDE
     Dosage: 10 MG, 1X/DAY
  3. FLUCTINE [Suspect]
     Active Substance: FLUOXETINE HYDROCHLORIDE
     Indication: PAIN
     Dosage: 20 MG, 1X/DAY
     Route: 048
  4. SYNAREL [Concomitant]
     Active Substance: NAFARELIN ACETATE
     Dosage: 2 DF, 1X/DAY
  5. TEMESTA [Concomitant]
     Active Substance: LORAZEPAM
     Dosage: 1 MG, 1X/DAY
  6. LYRICA [Suspect]
     Active Substance: PREGABALIN
     Indication: PAIN
     Dosage: 150 MG, DAILY
     Route: 048
  7. OXYCONTIN [Concomitant]
     Active Substance: OXYCODONE HYDROCHLORIDE
     Dosage: 10 MG, 2X/DAY
  8. BRUFEN [Concomitant]
     Active Substance: IBUPROFEN
     Dosage: 600 MG, 2X/DAY
  9. NEXIUM [Concomitant]
     Active Substance: ESOMEPRAZOLE MAGNESIUM
     Dosage: 20 MG, 1X/DAY
  10. STILNOX [Concomitant]
     Active Substance: ZOLPIDEM TARTRATE
     Dosage: 10 MG, 1X/DAY
  11. FLUCTINE [Suspect]
     Active Substance: FLUOXETINE HYDROCHLORIDE
     Dosage: 15 MG, DAILY
     Dates: start: 20150324

REACTIONS (1)
  - Essential tremor [Unknown]

NARRATIVE: CASE EVENT DATE: 201501
